FAERS Safety Report 21943530 (Version 3)
Quarter: 2023Q2

REPORT INFORMATION
  Report Type: Spontaneous
  Country: US (occurrence: US)
  Receive Date: 20230202
  Receipt Date: 20230518
  Transmission Date: 20230721
  Serious: No
  Sender: FDA-Public Use
  Company Number: US-BIOGEN-2022BI01110640

PATIENT
  Sex: Female

DRUGS (2)
  1. TYSABRI [Suspect]
     Active Substance: NATALIZUMAB
     Indication: Multiple sclerosis
     Route: 050
  2. TYSABRI [Suspect]
     Active Substance: NATALIZUMAB
     Route: 050
     Dates: start: 20170731, end: 20180917

REACTIONS (7)
  - Treatment failure [Recovered/Resolved]
  - Multiple sclerosis [Not Recovered/Not Resolved]
  - Mobility decreased [Unknown]
  - Multiple sclerosis relapse [Unknown]
  - Drug intolerance [Unknown]
  - Migraine [Recovered/Resolved]
  - Gait inability [Recovered/Resolved]

NARRATIVE: CASE EVENT DATE: 20170101
